FAERS Safety Report 14608285 (Version 1)
Quarter: 2018Q1

REPORT INFORMATION
  Report Type: Spontaneous
  Country: US (occurrence: US)
  Receive Date: 20180306
  Receipt Date: 20180306
  Transmission Date: 20180509
  Serious: No
  Sender: FDA-Public Use
  Company Number: None

PATIENT
  Age: 63 Year
  Sex: Female
  Weight: 70 kg

DRUGS (2)
  1. PROPOFOL. [Suspect]
     Active Substance: PROPOFOL
     Indication: SURGERY
     Dosage: ?          OTHER FREQUENCY:ONCE;?
     Route: 041
  2. PROPOFOL 200MG/ 20 ML ACTIVIS BRAND [Concomitant]

REACTIONS (2)
  - Myoclonus [None]
  - Infusion related reaction [None]

NARRATIVE: CASE EVENT DATE: 20180223
